FAERS Safety Report 12557636 (Version 1)
Quarter: 2016Q3

REPORT INFORMATION
  Report Type: Report from Study
  Country: US (occurrence: US)
  Receive Date: 20160714
  Receipt Date: 20160714
  Transmission Date: 20161109
  Serious: Yes (Hospitalization)
  Sender: FDA-Public Use
  Company Number: US-EXELIXIS-CABO-16006649

PATIENT
  Sex: Female

DRUGS (22)
  1. LOMOTIL [Concomitant]
     Active Substance: ATROPINE SULFATE\DIPHENOXYLATE HYDROCHLORIDE
  2. FENTANYL. [Concomitant]
     Active Substance: FENTANYL
  3. TOPROL XL [Concomitant]
     Active Substance: METOPROLOL SUCCINATE
  4. CALCIUM +D [Concomitant]
     Active Substance: CALCIUM\VITAMIN D
  5. PROBIOTIC [Concomitant]
     Active Substance: PROBIOTICS NOS
  6. KEFLEX [Concomitant]
     Active Substance: CEPHALEXIN
  7. LIPITOR [Concomitant]
     Active Substance: ATORVASTATIN CALCIUM
  8. DETROL [Concomitant]
     Active Substance: TOLTERODINE TARTRATE
  9. COMPAZINE [Concomitant]
     Active Substance: PROCHLORPERAZINE MALEATE
  10. HYDROCHLOROTHIAZIDE. [Concomitant]
     Active Substance: HYDROCHLOROTHIAZIDE
  11. LYRICA [Concomitant]
     Active Substance: PREGABALIN
  12. LEVEMIR [Concomitant]
     Active Substance: INSULIN DETEMIR
  13. FLEXERIL [Concomitant]
     Active Substance: CYCLOBENZAPRINE HYDROCHLORIDE
  14. LOSARTAN. [Concomitant]
     Active Substance: LOSARTAN
  15. COMETRIQ [Suspect]
     Active Substance: CABOZANTINIB S-MALATE
     Indication: RENAL CANCER
     Dosage: 60 MG, QD
     Route: 048
     Dates: start: 20160308, end: 201606
  16. MULTIVITAMIN [Concomitant]
     Active Substance: VITAMINS
  17. ZOFRAN [Concomitant]
     Active Substance: ONDANSETRON HYDROCHLORIDE
  18. NALOXEGOL [Concomitant]
     Active Substance: NALOXEGOL
  19. ZOLOFT [Concomitant]
     Active Substance: SERTRALINE HYDROCHLORIDE
  20. VITAMIN B12 [Concomitant]
     Active Substance: CYANOCOBALAMIN
  21. XANAX [Concomitant]
     Active Substance: ALPRAZOLAM
  22. MIRALAX [Concomitant]
     Active Substance: POLYETHYLENE GLYCOL 3350

REACTIONS (3)
  - Off label use [Unknown]
  - Hospitalisation [Unknown]
  - Malaise [Unknown]
